FAERS Safety Report 5794141-4 (Version None)
Quarter: 2008Q2

REPORT INFORMATION
  Report Type: 
  Country: None (occurrence: None)
  Receive Date: 20080627
  Receipt Date: 20080619
  Transmission Date: 20081010
  Serious: Yes (Other)
  Sender: FDA-Public Use
  Company Number: US-MERCK-0804USA01535

PATIENT
  Age: 8 Year
  Sex: Male
  Weight: 31 kg

DRUGS (2)
  1. SINGULAIR [Suspect]
     Indication: RHINITIS ALLERGIC
     Route: 048
     Dates: start: 20060901, end: 20080301
  2. ALBUTEROL [Concomitant]
     Route: 065

REACTIONS (5)
  - AGGRESSION [None]
  - ANGER [None]
  - HOMICIDAL IDEATION [None]
  - MOOD ALTERED [None]
  - SUICIDAL IDEATION [None]
